FAERS Safety Report 4723926-8 (Version None)
Quarter: 2005Q3

REPORT INFORMATION
  Report Type: 
  Country: None (occurrence: None)
  Receive Date: 20050722
  Receipt Date: 20050711
  Transmission Date: 20060218
  Serious: Yes (Hospitalization)
  Sender: FDA-Public Use
  Company Number: 11785

PATIENT
  Age: 38 Year
  Sex: Female

DRUGS (3)
  1. CYTOSINE ARABINOSIDE [Suspect]
     Indication: ACUTE MYELOID LEUKAEMIA
  2. IDARUBICIN HCL [Suspect]
     Indication: ACUTE MYELOID LEUKAEMIA
  3. ORAL CONTRACEPTIVE [Concomitant]

REACTIONS (13)
  - ACUTE MYELOID LEUKAEMIA RECURRENT [None]
  - ANAEMIA [None]
  - CLOSTRIDIUM COLITIS [None]
  - FIBRIN DEGRADATION PRODUCTS INCREASED [None]
  - GASTROINTESTINAL HAEMORRHAGE [None]
  - HYPOTENSION [None]
  - LEUKOPENIA [None]
  - RECTAL HAEMORRHAGE [None]
  - STEM CELL TRANSPLANT [None]
  - THERAPY NON-RESPONDER [None]
  - THROMBOCYTOPENIA [None]
  - UTERINE HAEMORRHAGE [None]
  - VAGINAL HAEMORRHAGE [None]
